FAERS Safety Report 13016525 (Version 2)
Quarter: 2017Q1

REPORT INFORMATION
  Report Type: Spontaneous
  Country: US (occurrence: US)
  Receive Date: 20161212
  Receipt Date: 20170303
  Transmission Date: 20170428
  Serious: Yes (Hospitalization)
  Sender: FDA-Public Use
  Company Number: US-JNJFOC-20161110399

PATIENT
  Age: 82 Year
  Sex: Male

DRUGS (4)
  1. ARIXTRA [Suspect]
     Active Substance: FONDAPARINUX SODIUM
     Indication: ANTICOAGULANT THERAPY
     Route: 065
     Dates: start: 2014, end: 2014
  2. XARELTO [Suspect]
     Active Substance: RIVAROXABAN
     Indication: CEREBROVASCULAR ACCIDENT PROPHYLAXIS
     Route: 048
     Dates: start: 20141029, end: 20141112
  3. XARELTO [Suspect]
     Active Substance: RIVAROXABAN
     Indication: PULMONARY EMBOLISM
     Route: 048
     Dates: start: 20141029, end: 20141112
  4. XARELTO [Suspect]
     Active Substance: RIVAROXABAN
     Indication: ATRIAL FIBRILLATION
     Route: 048
     Dates: start: 20141029, end: 20141112

REACTIONS (2)
  - Haemorrhagic arteriovenous malformation [Recovered/Resolved]
  - Gastrointestinal polyp haemorrhage [Unknown]

NARRATIVE: CASE EVENT DATE: 20141112
